FAERS Safety Report 21189015 (Version 1)
Quarter: 2022Q3

REPORT INFORMATION
  Report Type: Spontaneous
  Country: ES (occurrence: ES)
  Receive Date: 20220809
  Receipt Date: 20220809
  Transmission Date: 20221027
  Serious: Yes (Hospitalization, Other)
  Sender: FDA-Public Use
  Company Number: ES-AEMPS-1233813

PATIENT
  Age: 21 Year
  Sex: Male

DRUGS (9)
  1. QUETIAPINE [Suspect]
     Active Substance: QUETIAPINE
     Indication: Behaviour disorder
     Dosage: 100.0 MG C/24 H
     Route: 048
     Dates: start: 20201111, end: 20210610
  2. CYANOCOBALAMIN\FOLIC ACID [Concomitant]
     Active Substance: CYANOCOBALAMIN\FOLIC ACID
     Indication: Epilepsy
     Dosage: 1.0 COMP C/24 H
     Route: 048
     Dates: start: 20090825
  3. VALPROATE SODIUM [Concomitant]
     Active Substance: VALPROATE SODIUM
     Indication: Epilepsy
     Dosage: 500.0 MG DECOCE
     Route: 048
     Dates: start: 20210615
  4. SEROQUEL [Concomitant]
     Active Substance: QUETIAPINE FUMARATE
     Indication: Autism spectrum disorder
     Dosage: 50.0 MG DE
     Route: 048
     Dates: start: 20191212
  5. TOPAMAX [Concomitant]
     Active Substance: TOPIRAMATE
     Indication: Epilepsy
     Dosage: 200.0 MG DECE
     Route: 048
     Dates: start: 20210615
  6. Topama [Concomitant]
     Indication: Epilepsy
     Dosage: 100.0 MG DECE
     Route: 048
     Dates: start: 20210701
  7. PYRIDOXINE HYDROCHLORIDE [Concomitant]
     Active Substance: PYRIDOXINE HYDROCHLORIDE
     Indication: Epilepsy
     Dosage: 300.0 MG C/48 HORAS
     Route: 048
     Dates: start: 20190125
  8. FYCOMPA [Concomitant]
     Active Substance: PERAMPANEL
     Indication: Epilepsy
     Dosage: 8.0 MG C/24 H NOC
     Route: 048
     Dates: start: 20220201
  9. CLOBAZAM [Concomitant]
     Active Substance: CLOBAZAM
     Indication: Epilepsy
     Dosage: 10.0 MG CE
     Route: 048
     Dates: start: 20210615

REACTIONS (1)
  - Epilepsy [Recovered/Resolved]

NARRATIVE: CASE EVENT DATE: 20210607
